FAERS Safety Report 7312293-1 (Version None)
Quarter: 2011Q1

REPORT INFORMATION
  Report Type: 
  Country: None (occurrence: None)
  Receive Date: 20110224
  Receipt Date: 20110217
  Transmission Date: 20110831
  Serious: Yes (Hospitalization)
  Sender: FDA-Public Use
  Company Number: B0700995A

PATIENT
  Sex: Male
  Weight: 56 kg

DRUGS (30)
  1. SOLU-CORTEF [Concomitant]
     Dosage: 500MG PER DAY
     Dates: start: 20060117, end: 20060117
  2. IMMUNE GLOBULIN INTRAVENOUS (HUMAN) [Concomitant]
     Dosage: 2.5G PER DAY
     Route: 042
     Dates: start: 20060117, end: 20060117
  3. AMIKACIN SULFATE [Concomitant]
     Dosage: 400MG PER DAY
     Dates: start: 20060122, end: 20060129
  4. ALKERAN [Suspect]
     Indication: STEM CELL TRANSPLANT
     Dosage: 210MGM2 PER DAY
     Route: 042
     Dates: start: 20060116, end: 20060116
  5. CYLOCIDE [Suspect]
     Indication: STEM CELL TRANSPLANT
     Dosage: 600MG PER DAY
     Route: 042
     Dates: start: 20060112, end: 20060115
  6. CRAVIT [Concomitant]
     Dosage: 300MG PER DAY
     Route: 048
     Dates: start: 20060113, end: 20060126
  7. CYMERIN [Concomitant]
     Indication: STEM CELL TRANSPLANT
     Dosage: 375MG PER DAY
     Route: 042
     Dates: start: 20060111, end: 20060111
  8. VEEN F [Concomitant]
     Dosage: 1000ML PER DAY
     Route: 042
     Dates: start: 20060111, end: 20060115
  9. KYTRIL [Concomitant]
     Dosage: 6MG PER DAY
     Route: 042
     Dates: start: 20060112, end: 20060115
  10. ISCOTIN [Concomitant]
     Dosage: 200MG PER DAY
     Route: 048
     Dates: start: 20060113
  11. PREDONINE [Concomitant]
     Dosage: 20MG PER DAY
     Route: 048
     Dates: start: 20060130, end: 20060204
  12. VEPESID [Suspect]
     Indication: STEM CELL TRANSPLANT
     Dosage: 440MG PER DAY
     Route: 042
     Dates: start: 20060112, end: 20060115
  13. GRAN [Concomitant]
     Dates: start: 20060120, end: 20060126
  14. LOPEMIN [Concomitant]
     Dosage: 2MG PER DAY
     Route: 048
     Dates: start: 20060125, end: 20060201
  15. UNKNOWN [Concomitant]
     Dosage: 1000ML PER DAY
     Route: 042
     Dates: start: 20060118, end: 20060130
  16. KYTRIL [Concomitant]
     Dosage: 3MG PER DAY
     Route: 042
     Dates: start: 20060111, end: 20060111
  17. KYTRIL [Concomitant]
     Dosage: 3MG PER DAY
     Route: 042
     Dates: start: 20060116, end: 20060117
  18. SOLU-CORTEF [Concomitant]
     Dosage: 1500MG PER DAY
     Dates: start: 20060113, end: 20060115
  19. SOLU-CORTEF [Concomitant]
     Dosage: 600MG PER DAY
     Dates: start: 20060128, end: 20060129
  20. UNKNOWN [Concomitant]
     Dosage: 2000ML PER DAY
     Route: 042
     Dates: start: 20060117, end: 20060117
  21. IMMUNE GLOBULIN INTRAVENOUS (HUMAN) [Concomitant]
     Dosage: 2.5G PER DAY
     Route: 042
     Dates: start: 20060124, end: 20060124
  22. HAPTOGLOBIN [Concomitant]
     Dosage: 4IU3 PER DAY
     Route: 042
     Dates: start: 20060117, end: 20060117
  23. DIFLUCAN [Concomitant]
     Dosage: 200MG PER DAY
     Route: 048
     Dates: start: 20060113
  24. ZOVIRAX [Concomitant]
     Dosage: 1000MG PER DAY
     Route: 048
     Dates: start: 20060113
  25. VEEN F [Concomitant]
     Dosage: 1500ML PER DAY
     Route: 042
     Dates: start: 20060116, end: 20060116
  26. MEROPEN [Concomitant]
     Dosage: 2G PER DAY
     Route: 042
     Dates: start: 20060119, end: 20060129
  27. BERBERINE CHLORIDE [Concomitant]
     Dosage: 6IUAX PER DAY
     Route: 048
     Dates: start: 20060125, end: 20060201
  28. GASTER [Concomitant]
     Dosage: 20MG PER DAY
     Route: 048
     Dates: start: 20060130, end: 20060204
  29. IMMUNE GLOBULIN INTRAVENOUS (HUMAN) [Concomitant]
     Dosage: 2.5G PER DAY
     Route: 042
     Dates: start: 20060131, end: 20060131
  30. LENDORMIN [Concomitant]
     Dosage: .25MG PER DAY
     Route: 048
     Dates: start: 20060106

REACTIONS (2)
  - ABDOMINAL PAIN [None]
  - DIARRHOEA [None]
